FAERS Safety Report 6611461-1 (Version None)
Quarter: 2010Q1

REPORT INFORMATION
  Report Type: 
  Country: None (occurrence: None)
  Receive Date: 20100218
  Receipt Date: 20091016
  Transmission Date: 20100710
  Serious: No
  Sender: FDA-Public Use
  Company Number: WAES 0910USA02141

PATIENT

DRUGS (1)
  1. ISENTRESS [Suspect]
     Dosage: PO
     Route: 048

REACTIONS (1)
  - VOMITING [None]
